FAERS Safety Report 9949359 (Version 1)
Quarter: 2014Q1

REPORT INFORMATION
  Report Type: Spontaneous
  Country: FR (occurrence: FR)
  Receive Date: 20140304
  Receipt Date: 20140304
  Transmission Date: 20141002
  Serious: No
  Sender: FDA-Public Use
  Company Number: FR-JNJFOC-20140213210

PATIENT
  Sex: Female

DRUGS (6)
  1. DUROGESIC [Suspect]
     Indication: ARTHRALGIA
     Route: 062
  2. DUROGESIC [Suspect]
     Indication: ARTHRALGIA
     Route: 062
  3. DUROGESIC [Suspect]
     Indication: ARTHRALGIA
     Route: 062
  4. DUROGESIC [Suspect]
     Indication: ARTHRALGIA
     Route: 062
  5. DUROGESIC [Suspect]
     Indication: ARTHRALGIA
     Route: 062
  6. DOLIPRANE [Concomitant]
     Indication: PRODUCT USED FOR UNKNOWN INDICATION
     Route: 065

REACTIONS (4)
  - Drug intolerance [Unknown]
  - Feeling drunk [Unknown]
  - Disturbance in attention [Unknown]
  - Wrong technique in drug usage process [Unknown]
